FAERS Safety Report 4823495-8 (Version None)
Quarter: 2005Q4

REPORT INFORMATION
  Report Type: 
  Country: None (occurrence: None)
  Receive Date: 20051107
  Receipt Date: 20051019
  Transmission Date: 20060501
  Serious: Yes (Other)
  Sender: FDA-Public Use
  Company Number: TRP_0636_2005

PATIENT
  Age: 40 Year
  Sex: Male

DRUGS (2)
  1. RIBASPHERE [Suspect]
     Indication: HEPATITIS C
     Dosage: DF PO
     Route: 048
     Dates: start: 20050714
  2. PEG-INTRON [Suspect]
     Indication: HEPATITIS C
     Dosage: DF SC
     Route: 058
     Dates: start: 20050714

REACTIONS (2)
  - BLOOD GLUCOSE DECREASED [None]
  - WHITE BLOOD CELL COUNT DECREASED [None]
